FAERS Safety Report 10157291 (Version 2)
Quarter: 2015Q2

REPORT INFORMATION
  Report Type: Spontaneous
  Country: US (occurrence: US)
  Receive Date: 20140507
  Receipt Date: 20150609
  Transmission Date: 20150821
  Serious: Yes (Disabling, Other)
  Sender: FDA-Public Use
  Company Number: US-BAYER-2014-064873

PATIENT
  Age: 16 Year
  Sex: Female

DRUGS (4)
  1. YAZ [Suspect]
     Active Substance: DROSPIRENONE\ETHINYL ESTRADIOL
     Dosage: UNK
     Dates: start: 200701, end: 200704
  2. FLUCONAZOLE. [Concomitant]
     Active Substance: FLUCONAZOLE
  3. YASMIN [Suspect]
     Active Substance: DROSPIRENONE\ETHINYL ESTRADIOL
     Dosage: UNK
     Dates: start: 200701, end: 200704
  4. DOXYCYCLINE. [Concomitant]
     Active Substance: DOXYCYCLINE

REACTIONS (9)
  - Headache [None]
  - Thrombosis [None]
  - Injury [None]
  - Anxiety [None]
  - Pain [None]
  - Emotional distress [None]
  - Intracardiac thrombus [None]
  - Fear of death [None]
  - Genital haemorrhage [None]

NARRATIVE: CASE EVENT DATE: 200705
